FAERS Safety Report 23188912 (Version 2)
Quarter: 2023Q4

REPORT INFORMATION
  Report Type: Report from Study
  Country: US (occurrence: US)
  Receive Date: 20231115
  Receipt Date: 20231201
  Transmission Date: 20240110
  Serious: No
  Sender: FDA-Public Use
  Company Number: US-BIOGEN-2023BI01234920

PATIENT
  Age: 79 Year
  Sex: Female
  Weight: 55.9 kg

DRUGS (17)
  1. ADUCANUMAB [Suspect]
     Active Substance: ADUCANUMAB
     Indication: Dementia Alzheimer^s type
     Dosage: TITRATION PERIOD
     Route: 050
     Dates: start: 20230602, end: 20230602
  2. ADUCANUMAB [Suspect]
     Active Substance: ADUCANUMAB
     Dosage: TITRATION PERIOD
     Route: 050
     Dates: start: 20230628, end: 20230628
  3. ADUCANUMAB [Suspect]
     Active Substance: ADUCANUMAB
     Dosage: TITRATION PERIOD
     Route: 050
     Dates: start: 20230727, end: 20230727
  4. ADUCANUMAB [Suspect]
     Active Substance: ADUCANUMAB
     Dosage: TITRATION PERIOD
     Route: 050
     Dates: start: 20230823, end: 20230823
  5. ADUCANUMAB [Suspect]
     Active Substance: ADUCANUMAB
     Dosage: TITRATION PERIOD
     Route: 050
     Dates: start: 20230906, end: 20230906
  6. ADUCANUMAB [Suspect]
     Active Substance: ADUCANUMAB
     Dosage: TITRATION PERIOD
     Route: 050
     Dates: start: 20231017, end: 20231017
  7. AMYVID [Suspect]
     Active Substance: FLORBETAPIR F-18
     Indication: Positron emission tomogram
     Route: 050
     Dates: start: 20230502, end: 20230502
  8. FLORQUINITAU [Suspect]
     Active Substance: FLORQUINITAU
     Indication: Positron emission tomogram
     Route: 050
     Dates: start: 20230516, end: 20230516
  9. CALCIUM [Concomitant]
     Active Substance: CALCIUM
     Indication: Osteopenia
     Route: 050
     Dates: start: 2018
  10. DONEPEZIL [Concomitant]
     Active Substance: DONEPEZIL
     Indication: Memory impairment
     Route: 050
     Dates: start: 202205
  11. VITAMIN D3 [Concomitant]
     Active Substance: CHOLECALCIFEROL
     Indication: Nutritional supplementation
     Route: 050
     Dates: start: 2000
  12. VITAMIN B COMPLEX [Concomitant]
     Active Substance: CYANOCOBALAMIN\DEXPANTHENOL\NIACINAMIDE\PYRIDOXINE HYDROCHLORIDE\RIBOFLAVIN 5^-PHOSPHATE SODIUM\THIA
     Indication: Nutritional supplementation
     Dosage: 1 TABLET
     Route: 050
     Dates: start: 2000
  13. VITAMIN C [Concomitant]
     Active Substance: ASCORBIC ACID
     Indication: Nutritional supplementation
     Route: 050
     Dates: start: 2000
  14. ROSUVASTATIN [Concomitant]
     Active Substance: ROSUVASTATIN
     Indication: Arteriosclerosis
     Route: 050
     Dates: start: 2022
  15. VARENICLINE [Concomitant]
     Active Substance: VARENICLINE
     Indication: Dry eye
     Dosage: SPRAY IN EACH NOSTRIL
     Route: 050
     Dates: start: 20230426
  16. VITAMIN B12 [Concomitant]
     Active Substance: CYANOCOBALAMIN
     Indication: Nutritional supplementation
     Route: 050
     Dates: start: 2000
  17. TRAZODONE [Concomitant]
     Active Substance: TRAZODONE HYDROCHLORIDE
     Indication: Insomnia
     Route: 050
     Dates: start: 20221022

REACTIONS (1)
  - Amyloid related imaging abnormality-microhaemorrhages and haemosiderin deposits [Not Recovered/Not Resolved]

NARRATIVE: CASE EVENT DATE: 20231101
